FAERS Safety Report 9486237 (Version 1)
Quarter: 2013Q3

REPORT INFORMATION
  Report Type: Spontaneous
  Country: US (occurrence: US)
  Receive Date: 20130829
  Receipt Date: 20130829
  Transmission Date: 20140515
  Serious: No
  Sender: FDA-Public Use
  Company Number: US-PFIZER INC-2013244487

PATIENT
  Age: 59 Year
  Sex: Female
  Weight: 56.69 kg

DRUGS (2)
  1. CYTOMEL [Suspect]
     Indication: AUTOIMMUNE THYROIDITIS
     Dosage: 10 UG, 2X/DAY
  2. HYDROCORTISONE [Suspect]
     Indication: ADRENAL INSUFFICIENCY
     Dosage: 12.5 MG, 1X/DAY

REACTIONS (2)
  - Arthritis [Not Recovered/Not Resolved]
  - Arthralgia [Not Recovered/Not Resolved]
